FAERS Safety Report 5517218-7 (Version None)
Quarter: 2007Q4

REPORT INFORMATION
  Report Type: 
  Country: None (occurrence: None)
  Receive Date: 20071114
  Receipt Date: 20070906
  Transmission Date: 20080405
  Serious: No
  Sender: FDA-Public Use
  Company Number: A0678644A

PATIENT
  Age: 38 Year
  Sex: Male

DRUGS (1)
  1. COMMIT [Suspect]

REACTIONS (4)
  - IMPATIENCE [None]
  - INTENTIONAL DRUG MISUSE [None]
  - IRRITABILITY [None]
  - PERSONALITY CHANGE [None]
